FAERS Safety Report 23611465 (Version 4)
Quarter: 2024Q3

REPORT INFORMATION
  Report Type: Report from Study
  Country: DK (occurrence: DK)
  Receive Date: 20240308
  Receipt Date: 20240905
  Transmission Date: 20241017
  Serious: Yes (Hospitalization, Other)
  Sender: BAXTER
  Company Number: DK-BAXTER-2024BAX014019

PATIENT
  Age: 79 Year
  Sex: Male
  Weight: 87.1 kg

DRUGS (60)
  1. CYCLOPHOSPHAMIDE [Suspect]
     Active Substance: CYCLOPHOSPHAMIDE
     Indication: Diffuse large B-cell lymphoma stage IV
     Dosage: 750 MG/M2, C1D1, 3-WEEK CYCLE (21 DAYS) (DAY 1), AS A PART OF RCHOP REGIMEN, LAST DOSE PRIOR TO EVEN
     Route: 042
     Dates: start: 20231212, end: 20231212
  2. CYCLOPHOSPHAMIDE [Suspect]
     Active Substance: CYCLOPHOSPHAMIDE
     Dosage: 562.5 MG/M2, C2D1, ONGOING, 3-WEEK CYCLE (21 DAYS) (DAY 1), AS A PART OF RCHOP REGIMEN, RESTARTED
     Route: 042
     Dates: start: 20240108
  3. DOXORUBICIN [Suspect]
     Active Substance: DOXORUBICIN
     Indication: Diffuse large B-cell lymphoma stage IV
     Dosage: 50 MG/M2, C1D1, 3-WEEK CYCLE (21 DAYS) (DAY 1), AS A PART OF RCHOP REGIMEN, LAST DOSE PRIOR TO EVENT
     Route: 042
     Dates: start: 20231212, end: 20231212
  4. DOXORUBICIN [Suspect]
     Active Substance: DOXORUBICIN
     Dosage: 37.5 MG/M2, C2D1-ONWARDS, ONGOING, 3-WEEK CYCLE (21 DAYS) (DAY 1), AS A PART OF RCHOP REGIMEN, RESTA
     Route: 042
     Dates: start: 20240108
  5. EPCORITAMAB [Suspect]
     Active Substance: EPCORITAMAB
     Indication: Diffuse large B-cell lymphoma stage IV
     Dosage: 0.16 MG, PRIMING DOSE, C1D1, WEEKLY, 3-WEEK CYCLE (21 DAYS)
     Route: 058
     Dates: start: 20231212, end: 20231212
  6. EPCORITAMAB [Suspect]
     Active Substance: EPCORITAMAB
     Dosage: 0.8 MG, INTERMEDIATE DOSE, C1D8, WEEKLY, 3-WEEK CYCLE (21 DAYS)
     Route: 058
     Dates: start: 20231219, end: 20231219
  7. EPCORITAMAB [Suspect]
     Active Substance: EPCORITAMAB
     Dosage: 48 MG, FULL DOSE, C1D15, PRIOR TO THE ONSET OF EVENTS, WEEKLY, 3-WEEK CYCLE (21 DAYS)
     Route: 058
     Dates: start: 20231227, end: 20231227
  8. EPCORITAMAB [Suspect]
     Active Substance: EPCORITAMAB
     Dosage: 48 MG, C2D1, RESTARTED, WEEKLY, 3-WEEK CYCLE (21 DAYS), ONGOING
     Route: 058
     Dates: start: 20240108
  9. EPCORITAMAB [Suspect]
     Active Substance: EPCORITAMAB
     Dosage: 48 MG, C2D15-ONWARDS, ONGOING, WEEKLY, 3-WEEK CYCLE (21 DAYS)
     Route: 058
     Dates: start: 20240122, end: 20240122
  10. EPCORITAMAB [Suspect]
     Active Substance: EPCORITAMAB
     Dosage: 48 MG, C3D1, WEEKLY, 3-WEEK CYCLE (21 DAYS)
     Route: 058
     Dates: start: 20240130
  11. RITUXIMAB [Suspect]
     Active Substance: RITUXIMAB
     Indication: Diffuse large B-cell lymphoma stage IV
     Dosage: 375 MG/M2, C1D1, 3-WEEK CYCLE (21 DAYS) (DAY 1), AS A PART OF RCHOP REGIMEN
     Route: 042
     Dates: start: 20231212, end: 20231212
  12. RITUXIMAB [Suspect]
     Active Substance: RITUXIMAB
     Dosage: 375 MG/M2, C2D1-ONWARDS, 3-WEEK CYCLE (21 DAYS) (DAY 1), AS A PART OF RCHOP REGIMEN, ONGOING, RESTAR
     Route: 042
     Dates: start: 20240108
  13. VINCRISTINE [Suspect]
     Active Substance: VINCRISTINE
     Indication: Diffuse large B-cell lymphoma stage IV
     Dosage: 1.4 MG/M2, C1D1, 3-WEEK CYCLE (21 DAYS) (DAY 1), AS A PART OF RCHOP REGIMEN(RECOMMENDED CAP OF 2 MG)
     Route: 042
     Dates: start: 20231212, end: 20231212
  14. VINCRISTINE [Suspect]
     Active Substance: VINCRISTINE
     Dosage: 1.4 MG/M2, C2D1-ONWARDS, ONGOING, 3-WEEK CYCLE (21 DAYS) (DAY 1), AS A PART OF RCHOP REGIMEN, RESTAR
     Route: 042
     Dates: start: 20240108
  15. PREDNISONE [Suspect]
     Active Substance: PREDNISONE
     Indication: Diffuse large B-cell lymphoma stage IV
     Dosage: 100 MG, C1D1-D5, 3-WEEK CYCLE (21 DAYS), AS A PART OF RCHOP REGIMEN
     Route: 048
     Dates: start: 20231212, end: 20231216
  16. PREDNISONE [Suspect]
     Active Substance: PREDNISONE
     Dosage: 100 MG, C2D1-D5, 3-WEEK CYCLE (21 DAYS), AS A PART OF RCHOP REGIMEN, RESTARTED
     Route: 048
     Dates: start: 20240108, end: 20240113
  17. PREDNISONE [Suspect]
     Active Substance: PREDNISONE
     Dosage: UNK, C4D1-D5
     Route: 048
     Dates: start: 20240226, end: 20240302
  18. ACETAMINOPHEN [Concomitant]
     Active Substance: ACETAMINOPHEN
     Indication: Premedication
     Dosage: UNK
     Route: 065
     Dates: start: 20231120, end: 20240311
  19. ACETAMINOPHEN [Concomitant]
     Active Substance: ACETAMINOPHEN
     Dosage: UNK
     Route: 065
     Dates: start: 20231219, end: 20231227
  20. ACETAMINOPHEN [Concomitant]
     Active Substance: ACETAMINOPHEN
     Dosage: 1 GRAM
     Route: 048
     Dates: start: 20231227
  21. ACETAMINOPHEN [Concomitant]
     Active Substance: ACETAMINOPHEN
     Dosage: 1 GRAM
     Route: 048
     Dates: start: 20240108
  22. ACETAMINOPHEN [Concomitant]
     Active Substance: ACETAMINOPHEN
     Dosage: 1 GRAM
     Route: 048
     Dates: start: 20240122
  23. ACETAMINOPHEN [Concomitant]
     Active Substance: ACETAMINOPHEN
     Dosage: 1 GRAM
     Route: 048
     Dates: start: 20240130
  24. ACETAMINOPHEN [Concomitant]
     Active Substance: ACETAMINOPHEN
     Dosage: 1 GRAM
     Route: 048
     Dates: start: 20240226
  25. CETIRIZINE [Concomitant]
     Active Substance: CETIRIZINE HYDROCHLORIDE
     Indication: Premedication
     Dosage: 10 MG
     Route: 048
     Dates: start: 20231227, end: 20231227
  26. CETIRIZINE [Concomitant]
     Active Substance: CETIRIZINE HYDROCHLORIDE
     Dosage: 10 MG
     Route: 048
     Dates: start: 20240108, end: 20240108
  27. CETIRIZINE [Concomitant]
     Active Substance: CETIRIZINE HYDROCHLORIDE
     Dosage: 10 MG
     Route: 048
     Dates: start: 20240122, end: 20240122
  28. CETIRIZINE [Concomitant]
     Active Substance: CETIRIZINE HYDROCHLORIDE
     Dosage: 10 MG
     Route: 048
     Dates: start: 20240130, end: 20240130
  29. CETIRIZINE [Concomitant]
     Active Substance: CETIRIZINE HYDROCHLORIDE
     Dosage: 10 MG
     Route: 048
     Dates: start: 20240226
  30. CETIRIZINE [Concomitant]
     Active Substance: CETIRIZINE HYDROCHLORIDE
     Dosage: 10 MG
     Route: 048
     Dates: start: 20231227, end: 20240130
  31. DEXAMETHASONE [Concomitant]
     Active Substance: DEXAMETHASONE
     Indication: Prophylaxis
     Dosage: 15 MG
     Route: 048
     Dates: start: 20231219, end: 20231222
  32. DEXAMETHASONE [Concomitant]
     Active Substance: DEXAMETHASONE
     Dosage: 15 MG
     Route: 048
     Dates: start: 20231227
  33. DEXAMETHASONE [Concomitant]
     Active Substance: DEXAMETHASONE
     Dosage: 15 MG
     Route: 048
     Dates: start: 20240122
  34. DEXAMETHASONE [Concomitant]
     Active Substance: DEXAMETHASONE
     Dosage: UNK
     Route: 065
     Dates: start: 20231220, end: 20231227
  35. PREDNISOLONE [Concomitant]
     Active Substance: PREDNISOLONE
     Indication: Prophylaxis
     Dosage: UNK
     Route: 065
     Dates: start: 20231205, end: 20231211
  36. PREDNISOLONE [Concomitant]
     Active Substance: PREDNISOLONE
     Indication: Prophylaxis
     Dosage: 100 MG
     Route: 048
     Dates: start: 20240108, end: 20240113
  37. PREDNISOLONE [Concomitant]
     Active Substance: PREDNISOLONE
     Dosage: 100 MG
     Route: 048
     Dates: start: 20240130, end: 20240203
  38. PREDNISOLONE [Concomitant]
     Active Substance: PREDNISOLONE
     Dosage: 100 MG
     Route: 048
     Dates: start: 20240226, end: 20240302
  39. ALBUTEROL [Concomitant]
     Active Substance: ALBUTEROL
     Dosage: UNK
     Route: 065
     Dates: start: 20220915, end: 20231205
  40. Zoledronsaeure [Concomitant]
     Dosage: UNK
     Route: 065
     Dates: start: 20231205, end: 20231205
  41. PANTOPRAZOLE SODIUM [Concomitant]
     Active Substance: PANTOPRAZOLE SODIUM
     Dosage: UNK
     Route: 065
     Dates: start: 20220325, end: 20240107
  42. METOCLOPRAMIDE [Concomitant]
     Active Substance: METOCLOPRAMIDE
     Dosage: UNK
     Route: 065
     Dates: start: 20231212, end: 20231217
  43. MOVICOL [Concomitant]
     Active Substance: POLYETHYLENE GLYCOL 3350\POTASSIUM CHLORIDE\SODIUM BICARBONATE\SODIUM CHLORIDE
     Dosage: UNK
     Route: 065
     Dates: start: 20231103, end: 20231205
  44. ONDANSETRON [Concomitant]
     Active Substance: ONDANSETRON
     Dosage: UNK
     Route: 065
     Dates: start: 20231212, end: 20231215
  45. UNIKALK BASIC [Concomitant]
     Dosage: UNK, ONGOING
     Route: 065
     Dates: start: 20180305
  46. FUROSEMIDE [Concomitant]
     Active Substance: FUROSEMIDE
     Dosage: UNK,
     Route: 065
     Dates: start: 20220401, end: 20240110
  47. SULFAMETHOXAZOLE\TRIMETHOPRIM [Concomitant]
     Active Substance: SULFAMETHOXAZOLE\TRIMETHOPRIM
     Dosage: UNK, ONGOING
     Route: 065
     Dates: start: 20231212
  48. AZITHROMYCIN [Concomitant]
     Active Substance: AZITHROMYCIN
     Dosage: UNK
     Route: 065
     Dates: start: 20220516, end: 20240626
  49. VALACYCLOVIR HYDROCHLORIDE [Concomitant]
     Active Substance: VALACYCLOVIR HYDROCHLORIDE
     Dosage: UNK, ONGOING
     Route: 065
     Dates: start: 20231212
  50. ALLOPURINOL [Concomitant]
     Active Substance: ALLOPURINOL
     Dosage: UNK
     Route: 065
     Dates: start: 20231205, end: 20231217
  51. MONTELUKAST [Concomitant]
     Active Substance: MONTELUKAST SODIUM
     Dosage: UNK
     Route: 065
     Dates: start: 20231212, end: 20231212
  52. HYQVIA [Concomitant]
     Active Substance: HUMAN IMMUNOGLOBULIN G\HYALURONIDASE (HUMAN RECOMBINANT)
     Dosage: UNK
     Route: 065
     Dates: start: 20240117, end: 20240611
  53. MAGNESIUM OXIDE [Concomitant]
     Active Substance: MAGNESIUM OXIDE
     Dosage: UNK, ONGOING
     Route: 065
     Dates: start: 20231106
  54. PEGFILGRASTIM [Concomitant]
     Active Substance: PEGFILGRASTIM
     Dosage: UNK
     Route: 065
     Dates: start: 20231215, end: 20231215
  55. PIPERACILLIN SODIUM\TAZOBACTAM SODIUM [Concomitant]
     Active Substance: PIPERACILLIN SODIUM\TAZOBACTAM SODIUM
     Dosage: UNK
     Route: 065
     Dates: start: 20240305, end: 20240311
  56. OSELTAMIVIR [Concomitant]
     Active Substance: OSELTAMIVIR
     Dosage: UNK
     Route: 065
     Dates: start: 20240214, end: 20240306
  57. ZOPICLONE [Concomitant]
     Active Substance: ZOPICLONE
     Dosage: UNK,
     Route: 065
     Dates: start: 20240215, end: 20240215
  58. CETIRIZINE HYDROCHLORIDE [Concomitant]
     Active Substance: CETIRIZINE HYDROCHLORIDE
     Dosage: UNK,
     Route: 065
     Dates: start: 20240226, end: 20240226
  59. SODIUM CHLORIDE [Concomitant]
     Active Substance: SODIUM CHLORIDE
     Dosage: UNK
     Route: 065
     Dates: start: 20240214, end: 20240214
  60. DIGOXIN [Concomitant]
     Active Substance: DIGOXIN
     Dosage: UNK
     Route: 065
     Dates: start: 20240216, end: 20240217

REACTIONS (7)
  - Cytokine release syndrome [Recovered/Resolved]
  - Pyrexia [Recovered/Resolved]
  - Pyrexia [Recovered/Resolved]
  - Hypoxia [Recovered/Resolved]
  - Hypotension [Recovered/Resolved]
  - Adenovirus infection [Recovered/Resolved]
  - Pyrexia [Recovered/Resolved]

NARRATIVE: CASE EVENT DATE: 20231228
